FAERS Safety Report 18517610 (Version 3)
Quarter: 2020Q4

REPORT INFORMATION
  Report Type: Spontaneous
  Country: AR (occurrence: AR)
  Receive Date: 20201118
  Receipt Date: 20201224
  Transmission Date: 20210114
  Serious: Yes (Other)
  Sender: FDA-Public Use
  Company Number: NVSC2020AR305546

PATIENT
  Age: 48 Year
  Sex: Female

DRUGS (4)
  1. T4 MONTPELLIER [Concomitant]
     Indication: PRODUCT USED FOR UNKNOWN INDICATION
     Dosage: 150 UNK
     Route: 065
     Dates: start: 2014
  2. DIOVAN D [Suspect]
     Active Substance: HYDROCHLOROTHIAZIDE\VALSARTAN
     Indication: HYPERTENSION
     Dosage: 1 DF, QD (12.5/160 MG)
     Route: 065
  3. DIOVAN D [Suspect]
     Active Substance: HYDROCHLOROTHIAZIDE\VALSARTAN
     Dosage: 1 DF, QD (25/160 MG)
     Route: 065
     Dates: end: 20201111
  4. ATORVASTATIN [Concomitant]
     Active Substance: ATORVASTATIN
     Indication: PRODUCT USED FOR UNKNOWN INDICATION
     Dosage: 1 DF, QD (10 MG)
     Route: 065
     Dates: start: 2007

REACTIONS (9)
  - Weight increased [Unknown]
  - Off label use [Unknown]
  - Blood pressure increased [Recovered/Resolved]
  - Drug ineffective [Unknown]
  - Incorrect dose administered [Unknown]
  - Oedema peripheral [Recovered/Resolved]
  - Weight decreased [Unknown]
  - Product colour issue [Unknown]
  - Product dispensing error [Unknown]

NARRATIVE: CASE EVENT DATE: 20201107
